FAERS Safety Report 24655574 (Version 10)
Quarter: 2025Q2

REPORT INFORMATION
  Report Type: Spontaneous
  Country: CA (occurrence: CA)
  Receive Date: 20241123
  Receipt Date: 20250521
  Transmission Date: 20250717
  Serious: Yes (Life-Threatening, Hospitalization, Other)
  Sender: CELLTRION
  Company Number: CA-PFIZER INC-202400301080

PATIENT

DRUGS (33)
  1. INFLECTRA [Suspect]
     Active Substance: INFLIXIMAB-DYYB
     Indication: Crohn^s disease
     Route: 042
     Dates: start: 20241003, end: 20241003
  2. INFLECTRA [Suspect]
     Active Substance: INFLIXIMAB-DYYB
     Route: 042
     Dates: start: 20241112
  3. INFLECTRA [Suspect]
     Active Substance: INFLIXIMAB-DYYB
     Route: 042
     Dates: start: 20241127
  4. INFLECTRA [Suspect]
     Active Substance: INFLIXIMAB-DYYB
     Route: 042
     Dates: start: 20250106
  5. INFLECTRA [Suspect]
     Active Substance: INFLIXIMAB-DYYB
     Route: 042
     Dates: start: 20250219
  6. INFLECTRA [Suspect]
     Active Substance: INFLIXIMAB-DYYB
     Route: 042
     Dates: start: 20250327, end: 20250327
  7. AZATHIOPRINE [Concomitant]
     Active Substance: AZATHIOPRINE
     Indication: Immunosuppression
     Route: 048
     Dates: start: 20250203
  8. APO DOXAZOSIN [Concomitant]
     Indication: Blood pressure abnormal
     Dates: start: 20250203
  9. HYDRALAZINE HYDROCHLORIDE [Concomitant]
     Active Substance: HYDRALAZINE HYDROCHLORIDE
     Indication: Blood pressure abnormal
     Route: 048
     Dates: start: 20250206
  10. APO-METOPROLOL (TYPE L) [Concomitant]
     Indication: Cardiac disorder
     Route: 048
     Dates: start: 20250203
  11. CALCIUM CARBONATE [Concomitant]
     Active Substance: CALCIUM CARBONATE
     Indication: Hypovitaminosis
     Route: 048
  12. ASPIRIN [Concomitant]
     Active Substance: ASPIRIN
     Indication: Anticoagulant therapy
     Route: 048
  13. AMLODIPINE BESYLATE [Concomitant]
     Active Substance: AMLODIPINE BESYLATE
     Indication: Blood pressure abnormal
     Route: 048
  14. CENTRUM FORTE [Concomitant]
     Indication: Hypovitaminosis
     Route: 048
     Dates: start: 20250203
  15. CHLORTHALIDONE [Concomitant]
     Active Substance: CHLORTHALIDONE
     Route: 048
     Dates: start: 20250203
  16. ENTRESTO [Concomitant]
     Active Substance: SACUBITRIL\VALSARTAN
     Indication: Blood pressure abnormal
     Route: 048
     Dates: start: 20250203
  17. FENTANYL SANDOZ [FENTANYL CITRATE] [Concomitant]
     Indication: Pain
     Dates: start: 20240120
  18. IMURAN [Concomitant]
     Active Substance: AZATHIOPRINE
  19. METFORMIN HYDROCHLORIDE [Concomitant]
     Active Substance: METFORMIN HYDROCHLORIDE
  20. JARDIANCE [Concomitant]
     Active Substance: EMPAGLIFLOZIN
     Indication: Diabetes mellitus
     Route: 048
     Dates: start: 20250203
  21. MELATONIN EXTRA STRENGTH [Concomitant]
     Indication: Sleep disorder
     Route: 048
     Dates: start: 20250203
  22. NITROGLYCERIN PATCHES (II) [Concomitant]
     Indication: Chest pain
  23. NITROGLYCERIN PATCHES (II) [Concomitant]
  24. PANTOPRAZOLE MAGNESIUM [Concomitant]
     Active Substance: PANTOPRAZOLE MAGNESIUM
     Indication: Acidosis
     Route: 048
     Dates: start: 20250203
  25. ZOPICLONE [Concomitant]
     Active Substance: ZOPICLONE
     Indication: Sleep disorder
     Route: 048
     Dates: start: 20250205
  26. TRAZODONE HYDROCHLORIDE [Concomitant]
     Active Substance: TRAZODONE HYDROCHLORIDE
     Indication: Sleep disorder
     Route: 048
     Dates: start: 20250203
  27. PROLIA [Concomitant]
     Active Substance: DENOSUMAB
  28. ROSUVASTATIN CALCIUM [Concomitant]
     Active Substance: ROSUVASTATIN CALCIUM
     Indication: Blood cholesterol
     Route: 048
     Dates: start: 20250203
  29. LINAGLIPTIN [Concomitant]
     Active Substance: LINAGLIPTIN
     Indication: Diabetes mellitus
     Route: 048
     Dates: start: 20250203
  30. TEVA AMITRIPTYLINE [Concomitant]
     Indication: Sleep disorder
     Route: 048
  31. VITAMIN B12 [Concomitant]
     Active Substance: CYANOCOBALAMIN
     Dosage: 1 MG/ML, (INJECT MONTHLY)
     Route: 030
  32. VITAMIN B12 [Concomitant]
     Active Substance: CYANOCOBALAMIN
     Route: 030
  33. CHOLECALCIFEROL [Concomitant]
     Active Substance: CHOLECALCIFEROL
     Indication: Hypovitaminosis
     Route: 048

REACTIONS (10)
  - Suicide attempt [Unknown]
  - Intestinal obstruction [Not Recovered/Not Resolved]
  - Condition aggravated [Unknown]
  - Nausea [Recovering/Resolving]
  - Hypertension [Recovering/Resolving]
  - Heart rate increased [Unknown]
  - Headache [Recovering/Resolving]
  - Vomiting [Recovering/Resolving]
  - Poor venous access [Not Recovered/Not Resolved]
  - Off label use [Unknown]

NARRATIVE: CASE EVENT DATE: 20240101
